FAERS Safety Report 4823404-1 (Version None)
Quarter: 2005Q4

REPORT INFORMATION
  Report Type: 
  Country: None (occurrence: None)
  Receive Date: 20051107
  Receipt Date: 20051021
  Transmission Date: 20060501
  Serious: Yes (Hospitalization, Other)
  Sender: FDA-Public Use
  Company Number: ACO_0189_2005

PATIENT
  Age: 17 Year
  Sex: Female

DRUGS (9)
  1. SIRDALUD [Suspect]
     Indication: MUSCLE SPASTICITY
     Dosage: 6 MG QD
     Dates: start: 20050801, end: 20050801
  2. SIRDALUD [Suspect]
     Indication: MUSCLE SPASTICITY
     Dosage: 2 MG TID
     Dates: start: 20050801
  3. CIPROXIN [Suspect]
     Dosage: 500 MG BID
     Dates: start: 20050808, end: 20050811
  4. INDERAL [Suspect]
     Dosage: 20 MG TID
  5. BRUFEN [Concomitant]
  6. IMPORTAL [Concomitant]
  7. NEXIUM [Concomitant]
  8. MORPHINE [Concomitant]
  9. FRAXIPARINE [Concomitant]

REACTIONS (4)
  - DRUG INTERACTION [None]
  - HYPOTENSION [None]
  - MALAISE [None]
  - THERAPY NON-RESPONDER [None]
